FAERS Safety Report 4399784-0 (Version None)
Quarter: 2004Q3

REPORT INFORMATION
  Report Type: 
  Country: None (occurrence: None)
  Receive Date: 20040714
  Receipt Date: 20040630
  Transmission Date: 20050211
  Serious: Yes (Hospitalization)
  Sender: FDA-Public Use
  Company Number: 04P-163-0265418-00

PATIENT
  Age: 17 Year
  Sex: Female
  Weight: 54.4316 kg

DRUGS (5)
  1. DEPAKOTE [Suspect]
  2. RISPERIDONE [Concomitant]
  3. LITHIUM [Concomitant]
  4. CITALOPRAM HYDROBROMIDE [Concomitant]
  5. GABAPENTIN [Concomitant]

REACTIONS (7)
  - ANAEMIA [None]
  - DRUG INEFFECTIVE [None]
  - HEADACHE [None]
  - NAUSEA [None]
  - PARANOIA [None]
  - SUICIDAL IDEATION [None]
  - TRANSAMINASES INCREASED [None]
